FAERS Safety Report 6434086-X (Version None)
Quarter: 2009Q4

REPORT INFORMATION
  Report Type: 
  Country: None (occurrence: None)
  Receive Date: 20091110
  Receipt Date: 20090728
  Transmission Date: 20100525
  Serious: No
  Sender: FDA-Public Use
  Company Number: US-ASTRAZENECA-2009SE10318

PATIENT
  Sex: Female

DRUGS (1)
  1. PRILOSEC OTC [Suspect]
     Dosage: UNKNOWN
     Route: 048
     Dates: start: 20090721

REACTIONS (4)
  - ERYTHEMA [None]
  - RASH [None]
  - SKIN LESION [None]
  - SWELLING FACE [None]
